FAERS Safety Report 7437005-2 (Version None)
Quarter: 2011Q2

REPORT INFORMATION
  Report Type: 
  Country: None (occurrence: None)
  Receive Date: 20110415
  Receipt Date: 20110405
  Transmission Date: 20111010
  Serious: Yes (Hospitalization, Other)
  Sender: FDA-Public Use
  Company Number: 2011AC000025

PATIENT
  Age: 72 Year
  Sex: Female
  Weight: 97.5234 kg

DRUGS (39)
  1. LISPRO INSULIN [Concomitant]
  2. LANTUS [Concomitant]
  3. WARFARIN [Concomitant]
  4. ROBAXIN [Concomitant]
  5. LORTAB [Concomitant]
  6. FUROSEMIDE [Concomitant]
  7. METOPROLOL TARTRATE [Concomitant]
  8. POTASSIUM CHLORIDE [Concomitant]
  9. VANCOMYCIN [Concomitant]
  10. LIDODERM [Concomitant]
  11. FLORASTOR [Concomitant]
  12. BICARBONATE [Concomitant]
  13. NORVASC [Concomitant]
  14. NIASPAN [Concomitant]
  15. INDEROL [Concomitant]
  16. ACETAMINOPHEN [Concomitant]
  17. NEXIUM [Concomitant]
  18. MAGNESIUM OXIDE [Concomitant]
  19. NYSTATIN [Concomitant]
  20. KAYEXALATE [Concomitant]
  21. CLARITIN [Concomitant]
  22. REGLAN [Concomitant]
  23. DIFLUCAN [Concomitant]
  24. LEXAPRO [Concomitant]
  25. CALCIUM CHLORIDE [Concomitant]
  26. DIOVAN [Concomitant]
  27. DILTIAZEM [Concomitant]
  28. BUMEX [Concomitant]
  29. DIGIBIND [Concomitant]
  30. CALCIUM GLUCONATE [Concomitant]
  31. LOVENOX [Concomitant]
  32. ASPIRIN [Concomitant]
  33. DIGOXIN [Suspect]
     Indication: ATRIAL FIBRILLATION
     Dosage: 0.25 MG; QD; PO
     Route: 048
     Dates: start: 20080207
  34. CEFTRIAZONE [Concomitant]
  35. PRILOSEC [Concomitant]
  36. PERCOCET [Concomitant]
  37. ARICEPT [Concomitant]
  38. NAMENDA [Concomitant]
  39. PRIMIDONE [Concomitant]

REACTIONS (24)
  - RASH [None]
  - CONFUSIONAL STATE [None]
  - BRADYCARDIA [None]
  - DYSKINESIA [None]
  - ASTHENIA [None]
  - TREMOR [None]
  - ACTIVITIES OF DAILY LIVING IMPAIRED [None]
  - NAUSEA [None]
  - URINARY TRACT INFECTION [None]
  - PEDAL PULSE DECREASED [None]
  - EXCORIATION [None]
  - ANURIA [None]
  - RENAL FAILURE ACUTE [None]
  - ANAEMIA [None]
  - EATING DISORDER [None]
  - FLUID INTAKE REDUCED [None]
  - MYOCLONUS [None]
  - CONTUSION [None]
  - BLOOD PRESSURE INCREASED [None]
  - TREATMENT NONCOMPLIANCE [None]
  - TOXICITY TO VARIOUS AGENTS [None]
  - ABASIA [None]
  - OEDEMA PERIPHERAL [None]
  - NEUROPATHY PERIPHERAL [None]
